FAERS Safety Report 11622562 (Version 1)
Quarter: 2015Q4

REPORT INFORMATION
  Report Type: Spontaneous
  Country: US (occurrence: US)
  Receive Date: 20151013
  Receipt Date: 20151013
  Transmission Date: 20160304
  Serious: No
  Sender: FDA-Public Use
  Company Number: US-JNJFOC-20150309627

PATIENT
  Age: 8 Year
  Sex: Male
  Weight: 30.39 kg

DRUGS (1)
  1. CHILDRENS TYLENOL [Suspect]
     Active Substance: ACETAMINOPHEN
     Indication: PYREXIA
     Dosage: ONCE AT 11:00 AM AND ONCE AT 9:00 - 10:00 PM
     Route: 048
     Dates: start: 20150309, end: 20150310

REACTIONS (3)
  - Rash erythematous [Not Recovered/Not Resolved]
  - Product quality issue [Unknown]
  - Inappropriate schedule of drug administration [Unknown]

NARRATIVE: CASE EVENT DATE: 20150310
